FAERS Safety Report 6851934-X (Version None)
Quarter: 2010Q3

REPORT INFORMATION
  Report Type: 
  Country: None (occurrence: None)
  Receive Date: 20100717
  Receipt Date: 20071101
  Transmission Date: 20110219
  Serious: No
  Sender: FDA-Public Use
  Company Number: US-PFIZER INC-2007094206

PATIENT
  Sex: Female
  Weight: 63.6 kg

DRUGS (3)
  1. CHANTIX [Suspect]
     Indication: SMOKING CESSATION THERAPY
     Dates: start: 20071101
  2. TYLENOL PM [Concomitant]
     Indication: SLEEP DISORDER
  3. PREDNISONE [Concomitant]
     Indication: RASH
     Dates: start: 20071017

REACTIONS (3)
  - DRY MOUTH [None]
  - HEADACHE [None]
  - MALAISE [None]
